APPROVED DRUG PRODUCT: MYTESI
Active Ingredient: CROFELEMER
Strength: 125MG
Dosage Form/Route: TABLET, DELAYED RELEASE;ORAL
Application: N202292 | Product #001
Applicant: NAPO PHARMACEUTICALS INC
Approved: Dec 31, 2012 | RLD: Yes | RS: Yes | Type: RX

PATENTS:
Patent 9585868 | Expires: Oct 31, 2031
Patent 8962680 | Expires: Oct 31, 2031